FAERS Safety Report 21659780 (Version 2)
Quarter: 2022Q4

REPORT INFORMATION
  Report Type: Report from Study
  Country: US (occurrence: US)
  Receive Date: 20221129
  Receipt Date: 20221204
  Transmission Date: 20230113
  Serious: Yes (Hospitalization, Other)
  Sender: FDA-Public Use
  Company Number: US-ABBVIE-4216300

PATIENT
  Age: 49 Year
  Sex: Male

DRUGS (1)
  1. RINVOQ [Suspect]
     Active Substance: UPADACITINIB
     Indication: Rheumatoid arthritis
     Dosage: FORM STRENGTH: 30 MILLIGRAM
     Route: 048

REACTIONS (1)
  - Abscess [Recovering/Resolving]

NARRATIVE: CASE EVENT DATE: 20221101
